FAERS Safety Report 8963603 (Version 3)
Quarter: 2013Q2

REPORT INFORMATION
  Report Type: Spontaneous
  Country: US (occurrence: US)
  Receive Date: 20121214
  Receipt Date: 20130409
  Transmission Date: 20140414
  Serious: Yes (Hospitalization, Other)
  Sender: FDA-Public Use
  Company Number: US-ELI_LILLY_AND_COMPANY-US201212000842

PATIENT
  Age: 60 Year
  Sex: Female
  Weight: 50.79 kg

DRUGS (9)
  1. FORTEO [Suspect]
     Indication: OSTEOPOROSIS POSTMENOPAUSAL
     Dosage: 20 UG, QD
     Route: 058
     Dates: start: 201204
  2. FORTEO [Suspect]
     Dosage: 20 UG, QD
     Route: 058
     Dates: end: 20121011
  3. FORTEO [Suspect]
     Dosage: 20 UG, QD
     Route: 058
     Dates: start: 20130121
  4. ATIVAN [Concomitant]
     Dosage: 0.5 MG, UNK
  5. AZITHROMYCIN [Concomitant]
     Dosage: 250 MG, UNK
  6. PROZAC [Concomitant]
     Dosage: 20 MG, UNK
  7. SYNTHROID [Concomitant]
     Dosage: 0.075 MG, UNK
  8. CALCIUM CARBONATE W/VITAMIN D      /00944201/ [Concomitant]
     Dosage: 600-200 MG, UNK
  9. CARNITOR [Concomitant]
     Dosage: 330 MG, UNK

REACTIONS (2)
  - Renal cell carcinoma stage II [Recovering/Resolving]
  - Haematuria [Recovering/Resolving]
